FAERS Safety Report 17442047 (Version 1)
Quarter: 2020Q1

REPORT INFORMATION
  Report Type: Spontaneous
  Country: DE (occurrence: DE)
  Receive Date: 20200220
  Receipt Date: 20200220
  Transmission Date: 20200409
  Serious: Yes (Life-Threatening, Other)
  Sender: FDA-Public Use
  Company Number: DE-009507513-2002DEU006750

PATIENT
  Sex: Female
  Weight: 87 kg

DRUGS (8)
  1. ETONOGESTREL (+) ETHINYL ESTRADIOL [Suspect]
     Active Substance: ETHINYL ESTRADIOL\ETONOGESTREL
     Indication: HORMONAL CONTRACEPTION
     Dosage: UNK
     Route: 065
     Dates: start: 20091001, end: 20191126
  2. IBUPROFEN. [Suspect]
     Active Substance: IBUPROFEN
     Dosage: 400 MILLIGRAM, PRN
     Route: 065
  3. ZOLMITRIPTAN. [Suspect]
     Active Substance: ZOLMITRIPTAN
     Dosage: 5 MILLIGRAM, PRN
     Route: 065
     Dates: start: 201702
  4. OMALIZUMAB. [Suspect]
     Active Substance: OMALIZUMAB
     Dosage: 600 MILLIGRAM (14 DAYS)
     Route: 065
     Dates: start: 201504
  5. MONTELUKAST SODIUM. [Suspect]
     Active Substance: MONTELUKAST SODIUM
     Dosage: 10 MILLIGRAM, QD
     Route: 065
     Dates: start: 201610
  6. FLUTICASONE PROPIONATE (+) FORMOTEROL FUMARATE [Suspect]
     Active Substance: FLUTICASONE PROPIONATE\FORMOTEROL FUMARATE
     Dosage: 250MG/10MG (12 DAYS)
     Route: 065
     Dates: start: 201105
  7. TOPIRAMATE. [Suspect]
     Active Substance: TOPIRAMATE
     Dosage: 50 MILLIGRAM, Q12H
     Route: 065
     Dates: start: 200910
  8. LEVOCETIRIZINE [Suspect]
     Active Substance: LEVOCETIRIZINE
     Dosage: 10 MILLIGRAM, Q12H
     Route: 065
     Dates: start: 201504

REACTIONS (3)
  - Pain [Recovering/Resolving]
  - Thrombosis [Recovering/Resolving]
  - Peripheral swelling [Recovering/Resolving]

NARRATIVE: CASE EVENT DATE: 20190820
